FAERS Safety Report 11653557 (Version 2)
Quarter: 2016Q1

REPORT INFORMATION
  Report Type: Spontaneous
  Country: JP (occurrence: JP)
  Receive Date: 20151022
  Receipt Date: 20160107
  Transmission Date: 20160525
  Serious: Yes (Hospitalization)
  Sender: FDA-Public Use
  Company Number: JP-ELI_LILLY_AND_COMPANY-JP201510005392

PATIENT
  Age: 42 Year
  Sex: Female
  Weight: 52.1 kg

DRUGS (5)
  1. CYMBALTA [Suspect]
     Active Substance: DULOXETINE HYDROCHLORIDE
     Indication: NEUROPATHY PERIPHERAL
     Dosage: 20 MG, QD
     Route: 048
     Dates: start: 20150810, end: 20150925
  2. REBAMIPIDE [Concomitant]
     Active Substance: REBAMIPIDE
     Indication: CHRONIC GASTRITIS
     Dosage: 100 MG, PRN
     Route: 048
     Dates: start: 20150522
  3. ZOPICLONE [Concomitant]
     Active Substance: ZOPICLONE
     Indication: UTERINE CANCER
     Dosage: 7.5 MG, PRN
     Route: 048
     Dates: start: 20150208
  4. LOBU [Concomitant]
     Active Substance: LOBUCAVIR
     Indication: UTERINE CANCER
     Dosage: 60 MG, PRN
     Route: 048
     Dates: start: 20150211
  5. GOSHAJINKIGAN [Suspect]
     Active Substance: HERBALS
     Indication: NEUROPATHY PERIPHERAL
     Dosage: 2.5 G, TID
     Route: 048
     Dates: start: 20150810, end: 20150925

REACTIONS (4)
  - Drug-induced liver injury [Recovering/Resolving]
  - Fatty liver alcoholic [Unknown]
  - Off label use [Recovered/Resolved]
  - Malaise [Unknown]

NARRATIVE: CASE EVENT DATE: 20150810
